FAERS Safety Report 4274765-6 (Version None)
Quarter: 2004Q1

REPORT INFORMATION
  Report Type: 
  Country: None (occurrence: None)
  Receive Date: 20040116
  Receipt Date: 20040105
  Transmission Date: 20041129
  Serious: Yes (Hospitalization)
  Sender: FDA-Public Use
  Company Number: 6006830

PATIENT
  Age: 60 Year
  Sex: Male

DRUGS (3)
  1. METFORMIN HCL [Suspect]
     Indication: DIABETES MELLITUS
     Dosage: 1500 MG (750 MG, 2 IN 1 D)
     Route: 048
     Dates: start: 20030901, end: 20030914
  2. GLUCOPHAGE [Suspect]
     Indication: DIABETES MELLITUS
     Route: 048
     Dates: start: 20030918, end: 20030919
  3. ROCEPHINE (LYOPHILIZED SUBST.) (CEFTRIAXONE) [Suspect]
     Indication: URINARY TRACT INFECTION
     Dosage: 1 IN 1 D
     Route: 030
     Dates: start: 20030908, end: 20030913

REACTIONS (6)
  - ARTHRALGIA [None]
  - MYALGIA [None]
  - OEDEMA PERIPHERAL [None]
  - PURPURA [None]
  - URINARY TRACT INFECTION STAPHYLOCOCCAL [None]
  - URTICARIA [None]
